FAERS Safety Report 4499799-8 (Version None)
Quarter: 2004Q4

REPORT INFORMATION
  Report Type: 
  Country: None (occurrence: None)
  Receive Date: 20041110
  Receipt Date: 20041110
  Transmission Date: 20050328
  Serious: Yes (Hospitalization)
  Sender: FDA-Public Use
  Company Number: None

PATIENT
  Age: 69 Year
  Sex: Male
  Weight: 132.5 kg

DRUGS (15)
  1. WARFARIN SODIUM [Suspect]
     Indication: ATRIAL FIBRILLATION
     Dosage: VARIOUS,VARIOUS, ORAL
     Route: 048
  2. ROFECOXIB [Concomitant]
  3. ALLOPURINOL [Concomitant]
  4. METOPROLOL TARTRATE [Concomitant]
  5. SIMVASTATIN [Concomitant]
  6. INSULIN LISPRO HUMAN [Concomitant]
  7. FOSINOPRIL SODIUM [Concomitant]
  8. POTASSIUM CHLORIDE [Concomitant]
  9. BUMETANIDE [Concomitant]
  10. MULTIVITAMIN/MINERALS THERAPEUT [Concomitant]
  11. INSULIN SYRINGE [Concomitant]
  12. ALBUTEROL [Concomitant]
  13. DM 10/GUAIFENESN [Concomitant]
  14. FLUNISOLIDE [Concomitant]
  15. SILDENAFIL CITRATE [Concomitant]

REACTIONS (1)
  - LABORATORY TEST ABNORMAL [None]
